FAERS Safety Report 21588708 (Version 1)
Quarter: 2022Q4

REPORT INFORMATION
  Report Type: Spontaneous
  Country: CZ (occurrence: CZ)
  Receive Date: 20221114
  Receipt Date: 20221114
  Transmission Date: 20230113
  Serious: Yes (Other)
  Sender: FDA-Public Use
  Company Number: CZ-002147023-NVSC2022CZ242652

PATIENT

DRUGS (6)
  1. KESIMPTA [Suspect]
     Active Substance: OFATUMUMAB
     Indication: Relapsing-remitting multiple sclerosis
     Dosage: 20 MG IN 0.4 ML SOLUTION (WEEK 0,1,2, THEN 1 X PER MONTHLY)
     Route: 065
     Dates: start: 20220810
  2. KESIMPTA [Suspect]
     Active Substance: OFATUMUMAB
     Dosage: 20 MG IN 0.4 ML SOLUTION (WEEK 0,1,2, THEN 1 X PER MONTHLY)
     Route: 065
     Dates: start: 20220817
  3. KESIMPTA [Suspect]
     Active Substance: OFATUMUMAB
     Dosage: 20 MG IN 0.4 ML SOLUTION (WEEK 0,1,2, THEN 1 X PER MONTHLY)
     Route: 065
     Dates: start: 20220824
  4. KESIMPTA [Suspect]
     Active Substance: OFATUMUMAB
     Dosage: 20 MG IN 0.4 ML SOLUTION QMO (WEEK 0,1,2, THEN 1 X PER MONTHLY)
     Route: 065
     Dates: start: 20220907
  5. KESIMPTA [Suspect]
     Active Substance: OFATUMUMAB
     Dosage: 20 MG IN 0.4 ML SOLUTION QMO (WEEK 0,1,2, THEN 1 X PER MONTHLY)
     Route: 065
     Dates: start: 20221007
  6. KESIMPTA [Suspect]
     Active Substance: OFATUMUMAB
     Dosage: 20 MG IN 0.4 ML SOLUTION QMO (WEEK 0,1,2, THEN 1 X PER MONTHLY)
     Route: 065
     Dates: start: 20221107

REACTIONS (2)
  - Supraventricular tachycardia [Recovering/Resolving]
  - Palpitations [Unknown]

NARRATIVE: CASE EVENT DATE: 20220828
